FAERS Safety Report 8771240 (Version 2)
Quarter: 2012Q4

REPORT INFORMATION
  Report Type: 
  Country: GB (occurrence: GB)
  Receive Date: 20120906
  Receipt Date: 20121213
  Transmission Date: 20130627
  Serious: Yes (Other)
  Sender: FDA-Public Use
  Company Number: GB-B.I. PHARMACEUTICALS,INC./RIDGEFIELD-2012-UK-01150UK

PATIENT
  Age: 69 Year
  Sex: Male
  Weight: 89 kg

DRUGS (15)
  1. PRADAXA [Suspect]
     Indication: ATRIAL FIBRILLATION
     Dosage: 150 mg
     Route: 048
     Dates: start: 20120619
  2. PRADAXA [Suspect]
     Dosage: 300 mg
     Route: 048
     Dates: start: 20120622
  3. ALGESAL [Concomitant]
     Dates: start: 20120521
  4. AMLODIPINE [Concomitant]
     Dosage: 5 mg
     Dates: start: 20120306
  5. ASPIRIN [Concomitant]
     Dosage: 75 mg
     Dates: start: 20120612
  6. CARBIMAZOLE [Concomitant]
     Dosage: 10 mg
     Dates: start: 20120719
  7. CLOTRIMAZOLE [Concomitant]
     Dosage: 1% (1% strength) 2/1 days
     Dates: start: 20120320
  8. DIAZEPAM [Concomitant]
     Indication: MUSCLE SPASMS
     Dosage: 6 mg
     Dates: start: 20120518
  9. HYDROCORTISONE [Concomitant]
     Dosage: 1% (1% strength) 2/1 days
     Dates: start: 20120320
  10. LACTULOSE [Concomitant]
     Dosage: 30 ml
     Dates: start: 20120523
  11. SIMVASTATIN [Concomitant]
     Dosage: 40 mg
     Dates: start: 20120627
  12. SOTALOL [Concomitant]
     Dosage: 40 mg
     Dates: start: 20120306
  13. SOTALOL [Concomitant]
     Dosage: 80 mg
  14. TRIMETHOPRIM [Concomitant]
     Dosage: 400 mg
     Dates: start: 20120320
  15. WARFARIN [Concomitant]
     Dosage: 3 mg
     Dates: start: 20120306

REACTIONS (1)
  - Hyperthyroidism [Not Recovered/Not Resolved]
